FAERS Safety Report 8416635-5 (Version None)
Quarter: 2012Q2

REPORT INFORMATION
  Report Type: 
  Country: None (occurrence: None)
  Receive Date: 20120606
  Receipt Date: 20120524
  Transmission Date: 20120825
  Serious: Yes (Hospitalization, Other)
  Sender: FDA-Public Use
  Company Number: NL-TEVA-333931ISR

PATIENT
  Sex: Female

DRUGS (10)
  1. HYDROCHLOROTHIAZIDE [Concomitant]
  2. PARACETAMOL WITH CODEINE PHOSPHATE [Concomitant]
  3. COPAXONE [Suspect]
     Indication: MULTIPLE SCLEROSIS
     Dosage: 20 MILLIGRAM;
     Route: 058
     Dates: start: 20071106
  4. TRAMADOL HCL [Concomitant]
  5. MELOXICAM [Concomitant]
  6. KETOCONAZOLE [Concomitant]
  7. MIDAZOLAM HCL [Concomitant]
  8. DEPRONAL [Concomitant]
  9. OMEPRAZOLE [Concomitant]
  10. ASCORBIC ACID [Concomitant]

REACTIONS (1)
  - CEREBRAL INFARCTION [None]
